FAERS Safety Report 4842285-3 (Version None)
Quarter: 2005Q4

REPORT INFORMATION
  Report Type: 
  Country: None (occurrence: None)
  Receive Date: 20051129
  Receipt Date: 20051118
  Transmission Date: 20060501
  Serious: Yes (Other)
  Sender: FDA-Public Use
  Company Number: 200514009GDS

PATIENT
  Age: 39 Year
  Sex: Female

DRUGS (6)
  1. AVELOX [Suspect]
     Dosage: 400 MG, TOTAL DAILY, ORAL
     Route: 048
  2. ATIVAN [Concomitant]
  3. CLONAZEPAM [Concomitant]
  4. EFFEXOR XR [Concomitant]
  5. SINGULAIR [Concomitant]
  6. SYMBICORT TURBUHALER ^DRACO^ [Concomitant]

REACTIONS (6)
  - DYSPNOEA [None]
  - ELECTROCARDIOGRAM QT PROLONGED [None]
  - HYPOTENSION [None]
  - PARALYSIS [None]
  - TACHYCARDIA [None]
  - VOMITING [None]
